FAERS Safety Report 15528201 (Version 1)
Quarter: 2018Q4

REPORT INFORMATION
  Report Type: Spontaneous
  Country: US (occurrence: US)
  Receive Date: 20181020
  Receipt Date: 20181020
  Transmission Date: 20190205
  Serious: No
  Sender: FDA-Public Use
  Company Number: US-JNJFOC-20180112146

PATIENT
  Age: 60 Year
  Sex: Female
  Weight: 54.43 kg

DRUGS (2)
  1. SUDAFED [Suspect]
     Active Substance: PSEUDOEPHEDRINE HYDROCHLORIDE
     Route: 065
  2. SUDAFED [Suspect]
     Active Substance: PSEUDOEPHEDRINE HYDROCHLORIDE
     Indication: SINUS CONGESTION
     Route: 065
     Dates: start: 20180105, end: 20180105

REACTIONS (2)
  - Therapeutic response unexpected [Unknown]
  - Expired product administered [Unknown]

NARRATIVE: CASE EVENT DATE: 20180105
